FAERS Safety Report 26174706 (Version 1)
Quarter: 2025Q4

REPORT INFORMATION
  Report Type: Spontaneous
  Country: EU (occurrence: EU)
  Receive Date: 20251218
  Receipt Date: 20251218
  Transmission Date: 20260118
  Serious: Yes (Other)
  Sender: MERCK SHARP & DOHME LLC
  Company Number: None

PATIENT
  Age: 61 Year
  Sex: Female
  Weight: 70 kg

DRUGS (2)
  1. KEYTRUDA [Suspect]
     Active Substance: PEMBROLIZUMAB
     Indication: Breast cancer
     Dosage: 1 CYCLE 07/03//2024 200 MILLIGRAMS (200MG/TOTAL) LAST CYCLE 8 ON 08/22/2024. NEXT 1 CYCLE 12/2024...
     Route: 042
     Dates: start: 20240307, end: 202506
  2. TRODELVY [Suspect]
     Active Substance: SACITUZUMAB GOVITECAN-HZIY
     Indication: Breast cancer
     Dosage: 1 CYCLE 12/2024 LAST CYCLE 7 IN 06/2025
     Route: 042
     Dates: start: 202412, end: 202506

REACTIONS (2)
  - Arthralgia [Recovering/Resolving]
  - Bone pain [Recovering/Resolving]

NARRATIVE: CASE EVENT DATE: 20241201
